FAERS Safety Report 15262424 (Version 1)
Quarter: 2018Q3

REPORT INFORMATION
  Report Type: Spontaneous
  Country: US (occurrence: US)
  Receive Date: 20180720
  Receipt Date: 20180720
  Transmission Date: 20181010
  Serious: Yes (Life-Threatening, Hospitalization, Disabling)
  Sender: FDA-Public Use
  Company Number: None

PATIENT
  Age: 49 Year
  Sex: Female
  Weight: 68.04 kg

DRUGS (8)
  1. MARCAINE [Suspect]
     Active Substance: BUPIVACAINE HYDROCHLORIDE
     Indication: FIBROMYALGIA
     Dates: start: 20170720, end: 20170720
  2. LOTRISONE [Concomitant]
     Active Substance: BETAMETHASONE DIPROPIONATE\CLOTRIMAZOLE
  3. LIDOCAINE. [Concomitant]
     Active Substance: LIDOCAINE
  4. FENNEL SEED [Concomitant]
     Active Substance: FENNEL SEED
  5. ROPINIROL [Concomitant]
     Active Substance: ROPINIROLE
  6. GAS?X [Concomitant]
     Active Substance: DIMETHICONE
  7. MELATONIN [Concomitant]
     Active Substance: MELATONIN
  8. MYRBETRIQ [Concomitant]
     Active Substance: MIRABEGRON

REACTIONS (8)
  - Headache [None]
  - Cerebrovascular accident [None]
  - Feeling hot [None]
  - Pain [None]
  - Seizure [None]
  - Malaise [None]
  - Burning sensation [None]
  - Asthenia [None]

NARRATIVE: CASE EVENT DATE: 20170707
